FAERS Safety Report 4680266-3 (Version None)
Quarter: 2005Q2

REPORT INFORMATION
  Report Type: 
  Country: None (occurrence: None)
  Receive Date: 20050601
  Receipt Date: 20050517
  Transmission Date: 20051028
  Serious: Yes (Hospitalization, Other)
  Sender: FDA-Public Use
  Company Number: DEWYE673417MAY05

PATIENT
  Age: 20 Year
  Sex: Male

DRUGS (10)
  1. RAPAMUNE [Suspect]
     Indication: PROPHYLAXIS AGAINST TRANSPLANT REJECTION
     Dosage: SEE IMAGE
     Dates: start: 20030506, end: 20030506
  2. RAPAMUNE [Suspect]
     Indication: PROPHYLAXIS AGAINST TRANSPLANT REJECTION
     Dosage: SEE IMAGE
     Dates: start: 20030507
  3. MYCOPHENOLATE MOFETIL (MYCOPHENOLATE MOFETIL) [Concomitant]
  4. METHYLPREDNISOLONE [Concomitant]
  5. ESIDRIX [Concomitant]
  6. TENORMIN [Concomitant]
  7. RAMIPRIL [Concomitant]
  8. NEPHROTRANS (SODIUM BICARBONATE) [Concomitant]
  9. VIGANTOLETTEN (COLECALCIFEROL) [Concomitant]
  10. ROCALTROL [Concomitant]

REACTIONS (3)
  - GASTROENTERITIS [None]
  - NEPHROCALCINOSIS [None]
  - RENAL FAILURE ACUTE [None]
